FAERS Safety Report 8005941-4 (Version None)
Quarter: 2011Q4

REPORT INFORMATION
  Report Type: 
  Country: None (occurrence: None)
  Receive Date: 20111223
  Receipt Date: 20111214
  Transmission Date: 20120403
  Serious: Yes (Hospitalization)
  Sender: FDA-Public Use
  Company Number: BE-ASTRAZENECA-2011SE71539

PATIENT
  Age: 46 Year
  Sex: Female

DRUGS (22)
  1. CITALOPRAM HYDROBROMIDE [Concomitant]
     Dosage: UNKNOWN DOSE EVERY MORNING
     Dates: start: 20110501
  2. SEROQUEL [Suspect]
     Indication: SLEEP DISORDER
     Route: 048
     Dates: start: 20110501
  3. SIPRALEXA [Concomitant]
     Dates: start: 20111001
  4. FOLAVIT [Concomitant]
     Dates: start: 20111101
  5. SEROQUEL [Suspect]
     Route: 048
     Dates: start: 20110601
  6. CITALOPRAM HYDROBROMIDE [Concomitant]
     Dosage: UNKNOWN DOSE TWO TIMES A DAY
     Dates: start: 20110801
  7. SEROQUEL [Suspect]
     Route: 048
     Dates: start: 20111001
  8. SIPRALEXA [Concomitant]
     Dosage: UNKNOWN DOSE TWO TIMES A DAY
     Dates: start: 20110501
  9. SEROQUEL [Suspect]
     Route: 048
     Dates: start: 20111001
  10. CYMBALTA [Concomitant]
     Dates: start: 20110801
  11. PRAZEPAM [Concomitant]
     Dates: start: 20110912
  12. SEROQUEL [Suspect]
     Indication: DEPRESSED MOOD
     Route: 048
     Dates: start: 20110501
  13. SEROQUEL [Suspect]
     Route: 048
     Dates: start: 20110501
  14. SEROQUEL [Suspect]
     Route: 048
     Dates: start: 20110501
  15. SEROQUEL [Suspect]
     Route: 048
     Dates: start: 20110601
  16. BISOPROLOL [Concomitant]
     Dates: start: 20111001
  17. LORAZEPAM [Concomitant]
  18. CYMBALTA [Concomitant]
     Dates: start: 20110801, end: 20110801
  19. XANAX [Concomitant]
     Dates: start: 20110501
  20. XANAX [Concomitant]
     Dates: start: 20110601
  21. FENOGAL 200 [Concomitant]
     Indication: HYPERCHOLESTEROLAEMIA
     Dates: start: 20110501
  22. SINTROM [Concomitant]
     Dates: start: 20111101

REACTIONS (6)
  - ANXIETY [None]
  - AGITATION [None]
  - COAGULOPATHY [None]
  - DEPRESSED MOOD [None]
  - WRONG TECHNIQUE IN DRUG USAGE PROCESS [None]
  - PULMONARY EMBOLISM [None]
